FAERS Safety Report 14602375 (Version 3)
Quarter: 2019Q2

REPORT INFORMATION
  Report Type: Spontaneous
  Country: US (occurrence: US)
  Receive Date: 20180306
  Receipt Date: 20190410
  Transmission Date: 20190711
  Serious: Yes (Death)
  Sender: FDA-Public Use
  Company Number: US-PFIZER INC-2018035228

PATIENT
  Age: 71 Year
  Sex: Male
  Weight: 78.91 kg

DRUGS (9)
  1. METOPROLOL. [Concomitant]
     Active Substance: METOPROLOL
     Dosage: UNK
  2. COZAAR [Concomitant]
     Active Substance: LOSARTAN POTASSIUM
     Dosage: UNK
  3. SUTENT [Suspect]
     Active Substance: SUNITINIB MALATE
     Indication: RENAL CANCER STAGE IV
     Dosage: 50 MG, CYCLIC (2 WEEKS ON/1 WEEK OFF)
     Dates: start: 20180122
  4. GLIPIZIDE. [Concomitant]
     Active Substance: GLIPIZIDE
     Dosage: UNK
  5. CALCITRIOL. [Concomitant]
     Active Substance: CALCITRIOL
     Dosage: UNK (THREE TIMES A WEEK)
  6. VITAMIN B12 [Concomitant]
     Active Substance: CYANOCOBALAMIN
     Dosage: UNK
  7. LIPITOR [Concomitant]
     Active Substance: ATORVASTATIN CALCIUM
     Dosage: UNK
  8. VITAMIN D2 [Concomitant]
     Active Substance: ERGOCALCIFEROL
     Dosage: UNK
  9. BABY ASPIRIN [Concomitant]
     Active Substance: ASPIRIN
     Dosage: UNK

REACTIONS (22)
  - Neoplasm progression [Unknown]
  - White blood cell count decreased [Unknown]
  - Decreased appetite [Unknown]
  - Glossodynia [Unknown]
  - Weight decreased [Unknown]
  - Death [Fatal]
  - Gingival discomfort [Unknown]
  - Generalised erythema [Unknown]
  - Dizziness [Recovering/Resolving]
  - Oral pain [Unknown]
  - Dry skin [Unknown]
  - Skin fissures [Unknown]
  - Tongue discomfort [Unknown]
  - Skin disorder [Unknown]
  - Oral discomfort [Unknown]
  - Gingival pain [Unknown]
  - Headache [Unknown]
  - Hypertension [Unknown]
  - Blood glucose decreased [Unknown]
  - Dyspnoea [Recovering/Resolving]
  - Asthenia [Unknown]
  - Taste disorder [Unknown]

NARRATIVE: CASE EVENT DATE: 2018
